FAERS Safety Report 22647853 (Version 1)
Quarter: 2023Q2

REPORT INFORMATION
  Report Type: Spontaneous
  Country: US (occurrence: US)
  Receive Date: 20230628
  Receipt Date: 20230628
  Transmission Date: 20230722
  Serious: Yes (Other)
  Sender: FDA-Public Use
  Company Number: US-CATALYST PHARMACEUTICALS, INC-US-CATA-23-00364

PATIENT
  Age: 80 Year
  Sex: Female

DRUGS (2)
  1. FIRDAPSE [Suspect]
     Active Substance: AMIFAMPRIDINE PHOSPHATE
     Indication: Myasthenic syndrome
     Dosage: 1 TABLET IN THE MORNING AND 1 TABLET AT NIGHT
     Route: 048
     Dates: start: 2021
  2. FIRDAPSE [Suspect]
     Active Substance: AMIFAMPRIDINE PHOSPHATE
     Dosage: 1.5 DOSAGE FORM, TID
     Route: 048

REACTIONS (3)
  - Rheumatoid arthritis [Recovering/Resolving]
  - Hypersomnia [Recovering/Resolving]
  - Mobility decreased [Recovering/Resolving]

NARRATIVE: CASE EVENT DATE: 20230501
